FAERS Safety Report 8213412-5 (Version None)
Quarter: 2012Q1

REPORT INFORMATION
  Report Type: 
  Country: None (occurrence: None)
  Receive Date: 20120315
  Receipt Date: 20120303
  Transmission Date: 20120608
  Serious: Yes (Other)
  Sender: FDA-Public Use
  Company Number: FR-ROCHE-1047438

PATIENT
  Sex: Female

DRUGS (6)
  1. ANTALGIL [Concomitant]
  2. LUCENTIS [Suspect]
     Route: 050
     Dates: start: 20120119
  3. LUCENTIS [Suspect]
     Indication: AGE-RELATED MACULAR DEGENERATION
     Route: 050
     Dates: start: 20111101
  4. LUCENTIS [Suspect]
     Route: 050
     Dates: start: 20111201
  5. CHONDROSULF [Concomitant]
  6. ANTIGLAUCOMA AGENTS [Concomitant]

REACTIONS (7)
  - MALAISE [None]
  - TRANSIENT ISCHAEMIC ATTACK [None]
  - PAIN [None]
  - DRUG INEFFECTIVE [None]
  - TRANSIENT GLOBAL AMNESIA [None]
  - FALL [None]
  - VISION BLURRED [None]
